FAERS Safety Report 19576324 (Version 1)
Quarter: 2021Q3

REPORT INFORMATION
  Report Type: Spontaneous
  Country: US (occurrence: US)
  Receive Date: 20210719
  Receipt Date: 20210719
  Transmission Date: 20211014
  Serious: Yes (Other)
  Sender: FDA-Public Use
  Company Number: US-GLAXOSMITHKLINE-US2021GSK149427

PATIENT
  Sex: Female

DRUGS (8)
  1. ZANTAC [Suspect]
     Active Substance: RANITIDINE HYDROCHLORIDE
     Dosage: 150 MG, 3 TIMES/DAY OR 4 TIMES/DAY
     Route: 065
     Dates: start: 199501, end: 201808
  2. ZANTAC [Suspect]
     Active Substance: RANITIDINE HYDROCHLORIDE
     Indication: GASTROOESOPHAGEAL REFLUX DISEASE
     Dosage: 75 MG, 3 TIMES/DAY OR 4 TIMES/DAY
     Route: 065
     Dates: start: 199501, end: 201808
  3. RANITIDINE. [Suspect]
     Active Substance: RANITIDINE
     Indication: GASTROOESOPHAGEAL REFLUX DISEASE
     Dosage: 75 MG, 3 TIMES/DAY OR 4 TIMES/DAY
     Route: 065
     Dates: start: 199501, end: 201808
  4. RANITIDINE. [Suspect]
     Active Substance: RANITIDINE
     Dosage: 150 MG, 3 TIMES/DAY OR 4 TIMES/DAY
     Route: 065
     Dates: start: 199501, end: 201808
  5. ZANTAC [Suspect]
     Active Substance: RANITIDINE HYDROCHLORIDE
     Indication: GASTROOESOPHAGEAL REFLUX DISEASE
     Dosage: 75 MG, 3 TIMES/DAY OR 4 TIMES/DAY
     Route: 065
     Dates: start: 199501, end: 201808
  6. RANITIDINE. [Suspect]
     Active Substance: RANITIDINE
     Dosage: 150 MG, 3 TIMES/DAY OR 4 TIMES/DAY
     Route: 065
     Dates: start: 199501, end: 201808
  7. RANITIDINE. [Suspect]
     Active Substance: RANITIDINE
     Indication: GASTROOESOPHAGEAL REFLUX DISEASE
     Dosage: 75 MG, 3 TIMES/DAY OR 4 TIMES/DAY
     Route: 065
     Dates: start: 199501, end: 201808
  8. ZANTAC [Suspect]
     Active Substance: RANITIDINE HYDROCHLORIDE
     Dosage: 150 MG, 3 TIMES/DAY OR 4 TIMES/DAY
     Route: 065
     Dates: start: 199501, end: 201808

REACTIONS (1)
  - Gastric cancer [Unknown]
